FAERS Safety Report 5853997-7 (Version None)
Quarter: 2008Q3

REPORT INFORMATION
  Report Type: 
  Country: None (occurrence: None)
  Receive Date: 20080822
  Receipt Date: 20080819
  Transmission Date: 20090109
  Serious: Yes (Life-Threatening, Hospitalization)
  Sender: FDA-Public Use
  Company Number: CH-ABBOTT-08P-151-0471567-00

PATIENT
  Sex: Female

DRUGS (8)
  1. HUMIRA [Suspect]
     Indication: CROHN'S DISEASE
     Dosage: FIRST DOSE
     Route: 058
     Dates: start: 20080805
  2. HUMIRA [Suspect]
     Indication: COLITIS ULCERATIVE
  3. STEROIDS [Suspect]
     Indication: CROHN'S DISEASE
     Dosage: STARTED BEGINNING OF AUG 2008
     Route: 042
     Dates: start: 20080801, end: 20080801
  4. STEROIDS [Suspect]
     Indication: COLITIS ULCERATIVE
  5. AZATHIOPRINE [Suspect]
     Indication: CROHN'S DISEASE
     Dates: start: 20080801
  6. AZATHIOPRINE [Suspect]
     Indication: COLITIS ULCERATIVE
  7. PREDNISONE TAB [Suspect]
     Indication: CROHN'S DISEASE
     Route: 048
     Dates: start: 20080814
  8. PREDNISONE TAB [Suspect]
     Indication: COLITIS ULCERATIVE

REACTIONS (4)
  - DYSPNOEA [None]
  - GENERAL PHYSICAL HEALTH DETERIORATION [None]
  - HYPOTENSION [None]
  - SEPSIS [None]
